FAERS Safety Report 22159002 (Version 2)
Quarter: 2023Q2

REPORT INFORMATION
  Report Type: Spontaneous
  Country: US (occurrence: US)
  Receive Date: 20230331
  Receipt Date: 20230406
  Transmission Date: 20230722
  Serious: Yes (Hospitalization, Other)
  Sender: FDA-Public Use
  Company Number: US-ABBVIE-4709504

PATIENT

DRUGS (1)
  1. CREON [Suspect]
     Active Substance: PANCRELIPASE AMYLASE\PANCRELIPASE LIPASE\PANCRELIPASE PROTEASE
     Indication: Pancreatitis chronic
     Dosage: UNKNOWN
     Route: 048
     Dates: start: 1984

REACTIONS (26)
  - Pneumonia [Recovered/Resolved]
  - Diarrhoea [Not Recovered/Not Resolved]
  - Memory impairment [Not Recovered/Not Resolved]
  - General physical health deterioration [Not Recovered/Not Resolved]
  - Multiple organ dysfunction syndrome [Unknown]
  - Food refusal [Not Recovered/Not Resolved]
  - Abdominal distension [Not Recovered/Not Resolved]
  - Concussion [Recovering/Resolving]
  - Pancreatitis chronic [Not Recovered/Not Resolved]
  - Back pain [Not Recovered/Not Resolved]
  - Urinary incontinence [Not Recovered/Not Resolved]
  - Hypoglycaemia [Not Recovered/Not Resolved]
  - Injury [Not Recovered/Not Resolved]
  - Abdominal pain [Unknown]
  - Intestinal prolapse [Unknown]
  - Vomiting [Not Recovered/Not Resolved]
  - Gastrointestinal disorder [Unknown]
  - Sepsis [Unknown]
  - Skin laceration [Not Recovered/Not Resolved]
  - Oxygen saturation decreased [Unknown]
  - Gastrooesophageal reflux disease [Unknown]
  - Coma [Recovered/Resolved]
  - Nausea [Not Recovered/Not Resolved]
  - Renal failure [Recovered/Resolved]
  - Anal incontinence [Unknown]
  - Flatulence [Not Recovered/Not Resolved]

NARRATIVE: CASE EVENT DATE: 20020101
